FAERS Safety Report 7683945-9 (Version None)
Quarter: 2011Q3

REPORT INFORMATION
  Report Type: 
  Country: None (occurrence: None)
  Receive Date: 20110815
  Receipt Date: 20110804
  Transmission Date: 20111222
  Serious: Yes (Other)
  Sender: FDA-Public Use
  Company Number: US-ROCHE-786757

PATIENT
  Sex: Female
  Weight: 43.1 kg

DRUGS (2)
  1. ACCUTANE [Suspect]
     Route: 048
     Dates: start: 19980911, end: 19990401
  2. IBUPROFEN [Concomitant]

REACTIONS (10)
  - CROHN'S DISEASE [None]
  - INJURY [None]
  - INTESTINAL HAEMORRHAGE [None]
  - LARGE INTESTINAL ULCER [None]
  - INFLAMMATORY BOWEL DISEASE [None]
  - COLITIS ULCERATIVE [None]
  - GASTROINTESTINAL ULCER [None]
  - DRY SKIN [None]
  - APHTHOUS STOMATITIS [None]
  - FISTULA [None]
